FAERS Safety Report 15996939 (Version 2)
Quarter: 2020Q3

REPORT INFORMATION
  Report Type: Report from Study
  Country: US (occurrence: US)
  Receive Date: 20190222
  Receipt Date: 20200929
  Transmission Date: 20201102
  Serious: Yes (Other)
  Sender: FDA-Public Use
  Company Number: US-JNJFOC-20190218327

PATIENT
  Age: 12 Year
  Sex: Male
  Weight: 39.95 kg

DRUGS (1)
  1. REMICADE [Suspect]
     Active Substance: INFLIXIMAB
     Indication: CROHN^S DISEASE
     Route: 042
     Dates: start: 201801, end: 20190111

REACTIONS (8)
  - Sinusitis [Recovered/Resolved]
  - Respiratory tract infection [Recovered/Resolved]
  - Psoriasis [Recovered/Resolved]
  - Weight decreased [Unknown]
  - Influenza [Not Recovered/Not Resolved]
  - Off label use [Unknown]
  - Ear infection [Recovered/Resolved]
  - Product use issue [Unknown]

NARRATIVE: CASE EVENT DATE: 201801
